FAERS Safety Report 22527606 (Version 3)
Quarter: 2023Q2

REPORT INFORMATION
  Report Type: Report from Study
  Country: US (occurrence: US)
  Receive Date: 20230606
  Receipt Date: 20230617
  Transmission Date: 20230722
  Serious: No
  Sender: FDA-Public Use
  Company Number: US-002147023-NVSC2023US126307

PATIENT
  Weight: 86.1 kg

DRUGS (7)
  1. COSENTYX [Suspect]
     Active Substance: SECUKINUMAB
     Indication: Psoriasis
     Dosage: UNK
     Route: 065
  2. COSENTYX [Suspect]
     Active Substance: SECUKINUMAB
     Indication: Seborrhoeic keratosis
  3. BETAMETHASONE [Suspect]
     Active Substance: BETAMETHASONE
     Indication: Psoriasis
     Dosage: UNK
     Route: 065
  4. CICLOPIROX [Suspect]
     Active Substance: CICLOPIROX
     Indication: Psoriasis
     Route: 065
  5. CICLOPIROX [Suspect]
     Active Substance: CICLOPIROX
     Indication: Tinea pedis
  6. CALCIPOTRIENE [Suspect]
     Active Substance: CALCIPOTRIENE
     Indication: Psoriasis
     Route: 065
  7. STELARA [Concomitant]
     Active Substance: USTEKINUMAB
     Indication: Product used for unknown indication
     Dosage: UNK
     Route: 065

REACTIONS (13)
  - Seborrhoeic keratosis [Unknown]
  - Skin irritation [Unknown]
  - Scab [Unknown]
  - Papule [Unknown]
  - Haemangioma [Unknown]
  - Melanocytic naevus [Unknown]
  - Skin infection [Unknown]
  - Tinea pedis [Unknown]
  - Psoriasis [Unknown]
  - Rash [Unknown]
  - Skin lesion [Unknown]
  - Product use in unapproved indication [Unknown]
  - Treatment failure [Unknown]
